FAERS Safety Report 7938052-4 (Version None)
Quarter: 2011Q4

REPORT INFORMATION
  Report Type: 
  Country: None (occurrence: None)
  Receive Date: 20111123
  Receipt Date: 20111115
  Transmission Date: 20120403
  Serious: Yes (Other)
  Sender: FDA-Public Use
  Company Number: US-B.I. PHARMACEUTICALS,INC./RIDGEFIELD-2011-BP-26260BP

PATIENT
  Age: 73 Year
  Sex: Female

DRUGS (1)
  1. MOBIC [Suspect]
     Indication: OSTEOARTHRITIS

REACTIONS (2)
  - PAIN [None]
  - CEREBROVASCULAR ACCIDENT [None]
